FAERS Safety Report 20568291 (Version 8)
Quarter: 2022Q3

REPORT INFORMATION
  Report Type: Report from Study
  Country: US (occurrence: US)
  Receive Date: 20220308
  Receipt Date: 20220901
  Transmission Date: 20221027
  Serious: No
  Sender: FDA-Public Use
  Company Number: US-NOVARTISTESTPH-NVSC2022US054331

PATIENT
  Sex: Female

DRUGS (1)
  1. COSENTYX [Suspect]
     Active Substance: SECUKINUMAB
     Indication: Psoriasis
     Dosage: UNK
     Route: 065

REACTIONS (5)
  - Psoriasis [Recovering/Resolving]
  - Skin fissures [Unknown]
  - Pain [Unknown]
  - Diarrhoea [Unknown]
  - Drug ineffective [Not Recovered/Not Resolved]
